FAERS Safety Report 9047451 (Version 1)
Quarter: 2013Q1

REPORT INFORMATION
  Report Type: Spontaneous
  Country: US (occurrence: US)
  Receive Date: 20130201
  Receipt Date: 20130201
  Transmission Date: 20140127
  Serious: No
  Sender: FDA-Public Use
  Company Number: US-ABBOTT-12P-163-1028408-00

PATIENT
  Sex: Male
  Weight: 88.53 kg

DRUGS (11)
  1. HUMIRA [Suspect]
     Indication: COLITIS ULCERATIVE
     Route: 058
     Dates: start: 201205
  2. 6-MP [Concomitant]
     Indication: COLITIS ULCERATIVE
  3. APRISO [Concomitant]
     Indication: COLITIS ULCERATIVE
  4. ZOLOFT [Concomitant]
     Indication: DEPRESSION
  5. VESICARE [Concomitant]
     Indication: POLLAKIURIA
  6. SIMVASTATIN [Concomitant]
     Indication: BLOOD CHOLESTEROL INCREASED
  7. JANUEMT [Concomitant]
     Indication: DIABETES MELLITUS
  8. ALIGN [Concomitant]
     Indication: COLITIS ULCERATIVE
  9. PREDNISONE [Concomitant]
     Indication: COLITIS ULCERATIVE
  10. GLIMERIDE [Concomitant]
     Indication: DIABETES MELLITUS
  11. PRILOSEC [Concomitant]
     Indication: DYSPEPSIA

REACTIONS (2)
  - Rash macular [Not Recovered/Not Resolved]
  - Rash pruritic [Not Recovered/Not Resolved]
